FAERS Safety Report 24625629 (Version 1)
Quarter: 2024Q4

REPORT INFORMATION
  Report Type: Spontaneous
  Country: US (occurrence: US)
  Receive Date: 20241115
  Receipt Date: 20241115
  Transmission Date: 20250114
  Serious: No
  Sender: NOVO NORDISK
  Company Number: US-NOVOPROD-1131950

PATIENT
  Age: 71 Year
  Sex: Female

DRUGS (2)
  1. INSULIN ASPART [Suspect]
     Active Substance: INSULIN ASPART
     Indication: Type 1 diabetes mellitus
     Dosage: USED INSULIN PUMP 3.3 UNITS
     Route: 058
     Dates: start: 20231009, end: 20231009
  2. INSULIN ASPART [Suspect]
     Active Substance: INSULIN ASPART
     Dosage: USED INSULIN PUMP 3.3 UNITS
     Route: 058
     Dates: start: 20231012, end: 20231012

REACTIONS (3)
  - Dizziness [Unknown]
  - Blood glucose increased [Recovered/Resolved]
  - Product quality issue [Recovered/Resolved]

NARRATIVE: CASE EVENT DATE: 20231009
